FAERS Safety Report 18319123 (Version 1)
Quarter: 2020Q3

REPORT INFORMATION
  Report Type: Spontaneous
  Country: US (occurrence: US)
  Receive Date: 20200928
  Receipt Date: 20200928
  Transmission Date: 20201103
  Serious: Yes (Life-Threatening, Disabling, Other)
  Sender: FDA-Public Use
  Company Number: None

PATIENT
  Age: 63 Year
  Sex: Male
  Weight: 126.9 kg

DRUGS (9)
  1. AMLODIPINE [Concomitant]
     Active Substance: AMLODIPINE BESYLATE
  2. IRON [Concomitant]
     Active Substance: IRON
  3. ARANESP [Concomitant]
     Active Substance: DARBEPOETIN ALFA
  4. COREY [Concomitant]
  5. LASIX [Concomitant]
     Active Substance: FUROSEMIDE
  6. FOLIC [Concomitant]
     Active Substance: FOLIC ACID
  7. SYNTHROID [Concomitant]
     Active Substance: LEVOTHYROXINE SODIUM
  8. CIPROFLOXACIN. [Suspect]
     Active Substance: CIPROFLOXACIN
     Indication: SKIN INFECTION
     Dosage: ?          QUANTITY:10 TABLET(S);?
     Route: 048
     Dates: start: 20200916, end: 20200927
  9. CALCIUM [Concomitant]
     Active Substance: CALCIUM

REACTIONS (3)
  - Drug interaction [None]
  - Feeling abnormal [None]
  - Blindness transient [None]

NARRATIVE: CASE EVENT DATE: 20200926
